FAERS Safety Report 8112372-5 (Version None)
Quarter: 2012Q1

REPORT INFORMATION
  Report Type: 
  Country: None (occurrence: None)
  Receive Date: 20120203
  Receipt Date: 20120201
  Transmission Date: 20120608
  Serious: Yes (Death, Other)
  Sender: FDA-Public Use
  Company Number: DE-B.I. PHARMACEUTICALS,INC./RIDGEFIELD-2012-DE-00342DE

PATIENT
  Sex: Male
  Weight: 99 kg

DRUGS (4)
  1. PRADAXA [Suspect]
     Indication: ATRIAL FIBRILLATION
     Dosage: 220 MG
     Dates: start: 20120126, end: 20120131
  2. GLIMEPIRID [Concomitant]
     Indication: TYPE 2 DIABETES MELLITUS
     Dosage: 1 MG
  3. MADOPAR DEP [Concomitant]
     Indication: PARKINSON'S DISEASE
     Dosage: 4 ANZ
  4. MADOPAR LT [Concomitant]
     Indication: PARKINSON'S DISEASE
     Dosage: 2 ANZ

REACTIONS (2)
  - GASTROINTESTINAL HAEMORRHAGE [None]
  - HAEMATEMESIS [None]
